FAERS Safety Report 4642186-X (Version None)
Quarter: 2005Q2

REPORT INFORMATION
  Report Type: 
  Country: None (occurrence: None)
  Receive Date: 20050421
  Receipt Date: 20050302
  Transmission Date: 20051028
  Serious: Yes (Death)
  Sender: FDA-Public Use
  Company Number: 2005S1000924

PATIENT
  Age: 46 Year
  Sex: Male

DRUGS (5)
  1. CLOZAPINE [Suspect]
     Indication: POLYSUBSTANCE DEPENDENCE
     Dosage: 500 MG; HS; PO
     Route: 048
     Dates: start: 20031008, end: 20050201
  2. CLOZAPINE [Suspect]
     Indication: SCHIZOAFFECTIVE DISORDER
     Dosage: 500 MG; HS; PO
     Route: 048
     Dates: start: 20031008, end: 20050201
  3. BUSPAR [Suspect]
     Dosage: BID; PO
     Route: 048
  4. PAXIL [Suspect]
     Dosage: 30 MG; BID
  5. TIAGABINE HYDROCHLORIDE [Concomitant]

REACTIONS (1)
  - CONVULSION [None]
